FAERS Safety Report 21312849 (Version 1)
Quarter: 2022Q3

REPORT INFORMATION
  Report Type: Report from Study
  Country: FR (occurrence: FR)
  Receive Date: 20220909
  Receipt Date: 20220909
  Transmission Date: 20221027
  Serious: Yes (Other)
  Sender: FDA-Public Use
  Company Number: FR-SERVIER-S22009076

PATIENT

DRUGS (13)
  1. PEGASPARGASE [Suspect]
     Active Substance: PEGASPARGASE
     Indication: Acute lymphocytic leukaemia
     Dosage: 2625 IU ON D12 AND D26
     Route: 042
     Dates: start: 20211013, end: 20211027
  2. PREDNISOLONE [Suspect]
     Active Substance: PREDNISOLONE
     Indication: Acute lymphocytic leukaemia
     Dosage: 60 MG ON D8-D28
     Route: 048
     Dates: start: 20211009, end: 20211029
  3. VINCRISTINE [Suspect]
     Active Substance: VINCRISTINE
     Indication: Acute lymphocytic leukaemia
     Dosage: 1.5 MG ON D8, D15, D22, AND D29
     Route: 042
     Dates: start: 20211009, end: 20211030
  4. DAUNORUBICIN [Suspect]
     Active Substance: DAUNORUBICIN
     Indication: Acute lymphocytic leukaemia
     Dosage: 42 MG ON D8, D15, D22, AND D29
     Route: 042
     Dates: start: 20211009, end: 20211030
  5. CYCLOPHOSPHAMIDE [Suspect]
     Active Substance: CYCLOPHOSPHAMIDE
     Indication: Acute lymphocytic leukaemia
     Dosage: 1050 MG ON D9
     Route: 042
     Dates: start: 20211010
  6. METHOTREXATE [Suspect]
     Active Substance: METHOTREXATE
     Indication: Acute lymphocytic leukaemia
     Dosage: 12 MG ON D13 AND D24
     Route: 037
     Dates: start: 20211014, end: 20211025
  7. CYTARABINE [Suspect]
     Active Substance: CYTARABINE
     Indication: Acute lymphocytic leukaemia
     Dosage: 30 MG ON D13 AND D24
     Route: 037
     Dates: start: 20211014, end: 20211025
  8. HYDROCORTISONE [Suspect]
     Active Substance: HYDROCORTISONE
     Indication: Acute lymphocytic leukaemia
     Dosage: UNK ON D13 AND D24
     Route: 037
     Dates: start: 20211014, end: 20211025
  9. COTRIMOXAZOLE [Concomitant]
     Active Substance: SULFAMETHOXAZOLE\TRIMETHOPRIM
     Indication: Prophylaxis
     Dosage: 600 MG
     Route: 048
  10. ACETAMINOPHEN [Concomitant]
     Active Substance: ACETAMINOPHEN
     Indication: Discomfort
     Dosage: 400 MG
     Route: 048
  11. ONDANSETRON [Concomitant]
     Active Substance: ONDANSETRON
     Indication: Nausea
     Dosage: 16 MG
     Route: 048
  12. METOPIMAZINE [Concomitant]
     Active Substance: METOPIMAZINE
     Indication: Nausea
     Dosage: 7.5 MG
     Route: 048
  13. MICAFUNGIN [Concomitant]
     Active Substance: MICAFUNGIN
     Indication: Prophylaxis
     Dosage: UNK
     Route: 048

REACTIONS (1)
  - Febrile bone marrow aplasia [Recovered/Resolved]

NARRATIVE: CASE EVENT DATE: 20211103
